FAERS Safety Report 9200823 (Version 3)
Quarter: 2013Q2

REPORT INFORMATION
  Report Type: Spontaneous
  Country: US (occurrence: US)
  Receive Date: 20130401
  Receipt Date: 20130419
  Transmission Date: 20140414
  Serious: Yes (Other)
  Sender: FDA-Public Use
  Company Number: US-BAYER-2013-038108

PATIENT
  Age: 26 Year
  Sex: Female

DRUGS (1)
  1. MIRENA [Suspect]
     Indication: CONTRACEPTION
     Dosage: Q20 MCG/24HR, CONT
     Route: 015
     Dates: start: 2011, end: 20130322

REACTIONS (4)
  - Device difficult to use [None]
  - Device breakage [None]
  - Complication of device removal [None]
  - Device breakage [None]
